FAERS Safety Report 14765791 (Version 2)
Quarter: 2018Q2

REPORT INFORMATION
  Report Type: Spontaneous
  Country: US (occurrence: US)
  Receive Date: 20180416
  Receipt Date: 20180418
  Transmission Date: 20180711
  Serious: No
  Sender: FDA-Public Use
  Company Number: US-PFIZER INC-2018152791

PATIENT
  Age: 64 Year
  Sex: Female
  Weight: 105.2 kg

DRUGS (1)
  1. CELEBREX [Suspect]
     Active Substance: CELECOXIB
     Indication: ARTHRITIS
     Dosage: 200 MG, DAILY
     Route: 048

REACTIONS (3)
  - Condition aggravated [Unknown]
  - Mobility decreased [Unknown]
  - Weight increased [Recovering/Resolving]
